FAERS Safety Report 9641548 (Version 1)
Quarter: 2013Q4

REPORT INFORMATION
  Report Type: Spontaneous
  Country: GB (occurrence: GB)
  Receive Date: 20131023
  Receipt Date: 20131023
  Transmission Date: 20140711
  Serious: Yes (Disabling)
  Sender: FDA-Public Use
  Company Number: GB-B.I. PHARMACEUTICALS,INC./RIDGEFIELD-2013-BI-33170UK

PATIENT
  Age: 69 Year
  Sex: Female

DRUGS (9)
  1. PRADAXA [Suspect]
     Indication: ATRIAL FIBRILLATION
     Dosage: 300 MG
     Route: 048
     Dates: start: 20130814
  2. ATORVASTATIN [Concomitant]
     Indication: LIPIDS ABNORMAL
     Route: 048
     Dates: start: 2009
  3. DICLOFENAC [Concomitant]
     Indication: OSTEOARTHRITIS
     Dosage: 150 MG
     Route: 048
     Dates: start: 2001
  4. INDAPAMIDE [Concomitant]
     Indication: HYPERTENSION
     Route: 048
     Dates: start: 2012
  5. INFLUENZA VIRUS [Concomitant]
     Indication: IMMUNISATION
     Route: 030
     Dates: start: 20130927, end: 20130927
  6. LEVOTHYROXINE [Concomitant]
     Indication: HYPOTHYROIDISM
     Route: 048
     Dates: start: 2004
  7. LORATADINE [Concomitant]
     Indication: URTICARIA
     Route: 048
     Dates: start: 2000
  8. RAMIPRIL [Concomitant]
     Indication: HYPERTENSION
     Route: 048
     Dates: start: 2002
  9. RANITIDINE [Concomitant]
     Indication: OSTEOARTHRITIS
     Dosage: 300 MG
     Route: 048
     Dates: start: 2008

REACTIONS (4)
  - Arthralgia [Not Recovered/Not Resolved]
  - Dry skin [Not Recovered/Not Resolved]
  - Fatigue [Not Recovered/Not Resolved]
  - Weight increased [Not Recovered/Not Resolved]
